FAERS Safety Report 10780708 (Version 1)
Quarter: 2015Q1

REPORT INFORMATION
  Report Type: Spontaneous
  Country: US (occurrence: US)
  Receive Date: 20150210
  Receipt Date: 20150210
  Transmission Date: 20150721
  Serious: No
  Sender: FDA-Public Use
  Company Number: US-GLAXOSMITHKLINE-A1060611A

PATIENT

DRUGS (1)
  1. NICODERM CQ [Suspect]
     Active Substance: NICOTINE
     Indication: TOBACCO ABUSE
     Dates: start: 20140206

REACTIONS (6)
  - Arthralgia [Not Recovered/Not Resolved]
  - Application site pain [Not Recovered/Not Resolved]
  - Pain [Not Recovered/Not Resolved]
  - Application site erythema [Not Recovered/Not Resolved]
  - Drug administration error [Unknown]
  - Application site warmth [Not Recovered/Not Resolved]
